FAERS Safety Report 8988818 (Version 1)
Quarter: 2012Q4

REPORT INFORMATION
  Report Type: Spontaneous
  Country: US (occurrence: None)
  Receive Date: 20121220
  Receipt Date: 20121220
  Transmission Date: 20130627
  Serious: Yes (Other)
  Sender: FDA-Public Use
  Company Number: 2012-22143

PATIENT
  Age: 56 Year
  Sex: Male

DRUGS (1)
  1. PACLITAXEL [Suspect]
     Indication: SMALL CELL LUNG CANCER METASTATIC

REACTIONS (4)
  - Toxic skin eruption [None]
  - Pain [None]
  - Burning sensation [None]
  - Skin exfoliation [None]
